FAERS Safety Report 13880860 (Version 2)
Quarter: 2020Q1

REPORT INFORMATION
  Report Type: Spontaneous
  Country: SE (occurrence: SE)
  Receive Date: 20170818
  Receipt Date: 20200311
  Transmission Date: 20200409
  Serious: Yes (Hospitalization, Other)
  Sender: FDA-Public Use
  Company Number: US-CATALENT PHARMA SOLUTIONS-CAT-000373-2017

PATIENT
  Age: 3 Month
  Sex: Male

DRUGS (1)
  1. NON-VALPROIC ACID [Suspect]
     Active Substance: VALPROIC ACID
     Indication: EPILEPSY
     Dosage: 600 MILLIGRAM, BID
     Route: 063

REACTIONS (4)
  - Thrombotic thrombocytopenic purpura [Recovered/Resolved]
  - Exposure via breast milk [Recovered/Resolved]
  - Reticulocytosis [Recovered/Resolved]
  - Anaemia [Recovered/Resolved]
